FAERS Safety Report 6244921-6 (Version None)
Quarter: 2009Q2

REPORT INFORMATION
  Report Type: 
  Country: None (occurrence: None)
  Receive Date: 20090625
  Receipt Date: 20090612
  Transmission Date: 20091009
  Serious: Yes (Other)
  Sender: FDA-Public Use
  Company Number: PHHY2009MX23906

PATIENT
  Sex: Female

DRUGS (2)
  1. DIOVAN [Suspect]
     Indication: HYPERTENSION
     Dosage: 1 DF (160MG), QD
     Route: 048
     Dates: start: 20020301, end: 20090301
  2. OMEPRAZOLE [Concomitant]
     Indication: GASTRITIS
     Dosage: 1 TABLET PER DAY
     Dates: start: 20090101

REACTIONS (3)
  - DEPRESSION [None]
  - HYPERTENSION [None]
  - WEIGHT DECREASED [None]
